FAERS Safety Report 7446222-7 (Version None)
Quarter: 2011Q2

REPORT INFORMATION
  Report Type: 
  Country: None (occurrence: None)
  Receive Date: 20110429
  Receipt Date: 20110419
  Transmission Date: 20111010
  Serious: Yes (Other)
  Sender: FDA-Public Use
  Company Number: US-JNJFOC-20110409576

PATIENT
  Sex: Female
  Weight: 98.43 kg

DRUGS (4)
  1. NUCYNTA [Suspect]
     Indication: PAIN
     Route: 048
  2. OPANA [Concomitant]
     Indication: PAIN
     Route: 048
  3. METOPROLOL [Concomitant]
     Indication: CARDIAC DISORDER
     Route: 048
  4. SAVELLA [Concomitant]
     Indication: MYALGIA
     Route: 048

REACTIONS (1)
  - HYPERTENSION [None]
